FAERS Safety Report 5897592-2 (Version None)
Quarter: 2008Q3

REPORT INFORMATION
  Report Type: 
  Country: None (occurrence: None)
  Receive Date: 20080829
  Receipt Date: 20080721
  Transmission Date: 20090109
  Serious: Yes (Other)
  Sender: FDA-Public Use
  Company Number: PHEH2008US06576

PATIENT
  Age: 10 Year
  Sex: Female

DRUGS (3)
  1. EXJADE [Suspect]
     Dosage: 27MG/KG, QD, ORAL : 24MG/KG : 20 MG/KG QD
     Route: 048
     Dates: start: 20071029, end: 20080201
  2. EXJADE [Suspect]
     Dosage: 27MG/KG, QD, ORAL : 24MG/KG : 20 MG/KG QD
     Route: 048
     Dates: start: 20060104
  3. EXJADE [Suspect]
     Dosage: 27MG/KG, QD, ORAL : 24MG/KG : 20 MG/KG QD
     Route: 048
     Dates: start: 20070816

REACTIONS (5)
  - ALANINE AMINOTRANSFERASE INCREASED [None]
  - ASPARTATE AMINOTRANSFERASE INCREASED [None]
  - BIOPSY LIVER ABNORMAL [None]
  - BLOOD BILIRUBIN INCREASED [None]
  - HEPATOCELLULAR INJURY [None]
